FAERS Safety Report 7518832-X (Version None)
Quarter: 2011Q2

REPORT INFORMATION
  Report Type: 
  Country: None (occurrence: None)
  Receive Date: 20110523
  Receipt Date: 20110513
  Transmission Date: 20111010
  Serious: Yes (Other)
  Sender: FDA-Public Use
  Company Number: 2011GR_BP7364

PATIENT
  Age: 27 Year
  Sex: Male

DRUGS (1)
  1. FINASTERIDE [Suspect]
     Indication: ANDROGENETIC ALOPECIA
     Dosage: (1 MG) ORAL
     Route: 048
     Dates: start: 20100910, end: 20110118

REACTIONS (9)
  - INSOMNIA [None]
  - EMOTIONAL POVERTY [None]
  - ASTHENIA [None]
  - ERECTILE DYSFUNCTION [None]
  - PENILE SIZE REDUCED [None]
  - DISTURBANCE IN ATTENTION [None]
  - MUSCLE ATROPHY [None]
  - SKIN DISCOLOURATION [None]
  - DEPRESSION [None]
